FAERS Safety Report 8250672-9 (Version None)
Quarter: 2012Q2

REPORT INFORMATION
  Report Type: 
  Country: None (occurrence: None)
  Receive Date: 20120402
  Receipt Date: 20120327
  Transmission Date: 20120825
  Serious: Yes (Death, Other)
  Sender: FDA-Public Use
  Company Number: CN-PFIZER INC-2012077675

PATIENT
  Age: 53 Year
  Sex: Male

DRUGS (1)
  1. SUTENT [Suspect]
     Indication: RENAL CELL CARCINOMA
     Dosage: UNK

REACTIONS (5)
  - RENAL CELL CARCINOMA [None]
  - ASPHYXIA [None]
  - MULTI-ORGAN FAILURE [None]
  - VOMITING [None]
  - DISEASE PROGRESSION [None]
